FAERS Safety Report 8226027-X (Version None)
Quarter: 2012Q1

REPORT INFORMATION
  Report Type: 
  Country: None (occurrence: None)
  Receive Date: 20120321
  Receipt Date: 20120321
  Transmission Date: 20120608
  Serious: No
  Sender: FDA-Public Use
  Company Number: US-PFIZER INC-2012061830

PATIENT
  Sex: Male

DRUGS (6)
  1. PRISTIQ [Suspect]
     Dosage: UNK
  2. CHANTIX [Suspect]
     Dosage: UNK
  3. EFFEXOR XR [Suspect]
     Dosage: UNK
  4. PROTONIX [Suspect]
     Dosage: UNK
  5. NEURONTIN [Suspect]
     Dosage: UNK
  6. XALATAN [Suspect]
     Dosage: UNK

REACTIONS (1)
  - MEMORY IMPAIRMENT [None]
